FAERS Safety Report 9053092 (Version 1)
Quarter: 2013Q1

REPORT INFORMATION
  Report Type: Spontaneous
  Country: US (occurrence: US)
  Receive Date: 20130208
  Receipt Date: 20130208
  Transmission Date: 20140127
  Serious: No
  Sender: FDA-Public Use
  Company Number: US-BIOGENIDEC-2013BI010299

PATIENT
  Sex: Female

DRUGS (1)
  1. TYSABRI [Suspect]
     Indication: MULTIPLE SCLEROSIS
     Route: 042
     Dates: start: 20121203

REACTIONS (10)
  - Feeling abnormal [Unknown]
  - Frustration [Unknown]
  - Paraesthesia [Unknown]
  - Muscular weakness [Unknown]
  - Paranoia [Unknown]
  - Gait disturbance [Unknown]
  - Emotional disorder [Unknown]
  - Mental impairment [Unknown]
  - Adverse event [Unknown]
  - Loss of control of legs [Not Recovered/Not Resolved]
